FAERS Safety Report 12944464 (Version 1)
Quarter: 2016Q4

REPORT INFORMATION
  Report Type: Spontaneous
  Country: GB (occurrence: GB)
  Receive Date: 20161115
  Receipt Date: 20161115
  Transmission Date: 20170207
  Serious: Yes (Disabling, Other)
  Sender: FDA-Public Use
  Company Number: GB-TEVA-710714ACC

PATIENT
  Age: 65 Year
  Sex: Male
  Weight: 98 kg

DRUGS (5)
  1. ROPINIROLE. [Suspect]
     Active Substance: ROPINIROLE
     Indication: PARKINSON^S DISEASE
     Dosage: 8 MILLIGRAM DAILY;
     Route: 048
     Dates: start: 20090424
  2. KEMADRIN [Concomitant]
     Active Substance: PROCYCLIDINE HYDROCHLORIDE
  3. LAMOTRIGINE. [Concomitant]
     Active Substance: LAMOTRIGINE
  4. MADOPAR [Concomitant]
     Active Substance: BENSERAZIDE HYDROCHLORIDE\LEVODOPA
  5. RASAGILINE [Concomitant]
     Active Substance: RASAGILINE

REACTIONS (1)
  - Disinhibition [Not Recovered/Not Resolved]

NARRATIVE: CASE EVENT DATE: 20160601
